FAERS Safety Report 5758688-9 (Version None)
Quarter: 2008Q2

REPORT INFORMATION
  Report Type: 
  Country: None (occurrence: None)
  Receive Date: 20080603
  Receipt Date: 20080603
  Transmission Date: 20081010
  Serious: Yes (Disabling)
  Sender: FDA-Public Use
  Company Number: None

PATIENT
  Sex: Male
  Weight: 102.9665 kg

DRUGS (2)
  1. ALEVE [Suspect]
     Indication: LOWER LIMB FRACTURE
     Dosage: 2 TABLETS AS NEEDED
     Dates: start: 20050601, end: 20070101
  2. ALEVE [Suspect]
     Indication: PAIN IN EXTREMITY
     Dosage: 2 TABLETS AS NEEDED
     Dates: start: 20050601, end: 20070101

REACTIONS (2)
  - MYALGIA [None]
  - RENAL IMPAIRMENT [None]
